FAERS Safety Report 13246157 (Version 1)
Quarter: 2017Q1

REPORT INFORMATION
  Report Type: Spontaneous
  Country: US (occurrence: US)
  Receive Date: 20170217
  Receipt Date: 20170217
  Transmission Date: 20170428
  Serious: Yes (Death)
  Sender: FDA-Public Use
  Company Number: US-TEVA-740033USA

PATIENT
  Sex: Male

DRUGS (10)
  1. VENLAFAXINE [Concomitant]
     Active Substance: VENLAFAXINE HYDROCHLORIDE
     Dates: start: 20100322
  2. TIZANIDINE. [Concomitant]
     Active Substance: TIZANIDINE
     Dates: start: 20100322
  3. LIPITOR [Concomitant]
     Active Substance: ATORVASTATIN CALCIUM
     Dates: start: 20100322
  4. COPAXONE [Suspect]
     Active Substance: GLATIRAMER ACETATE
     Indication: MULTIPLE SCLEROSIS
     Route: 058
  5. MODAFINIL. [Concomitant]
     Active Substance: MODAFINIL
     Dates: start: 20100322
  6. HYDROCODONE BITARTRATE AND ACETAMINOPHEN [Concomitant]
     Active Substance: ACETAMINOPHEN\HYDROCODONE BITARTRATE
     Dosage: 1 DF = 5 MG HYDROCODONE + 500 MG ACETAMINOPHEN
     Dates: start: 20100322
  7. HYDROCODONE BITARTRATE AND ACETAMINOPHEN [Concomitant]
     Active Substance: ACETAMINOPHEN\HYDROCODONE BITARTRATE
     Dosage: 1 DF = 10 MG HYDROCODONE + 325 MG ACETAMINOPHEN
     Dates: start: 20090814
  8. ASPIRIN. [Concomitant]
     Active Substance: ASPIRIN
     Dates: start: 20100322
  9. ALPRAZOLAM. [Concomitant]
     Active Substance: ALPRAZOLAM
     Dates: start: 20090819
  10. XANAX [Concomitant]
     Active Substance: ALPRAZOLAM
     Dates: start: 20100322

REACTIONS (1)
  - Death [Fatal]
